FAERS Safety Report 7930031-6 (Version None)
Quarter: 2011Q4

REPORT INFORMATION
  Report Type: 
  Country: None (occurrence: None)
  Receive Date: 20111118
  Receipt Date: 20111118
  Transmission Date: 20120403
  Serious: Yes (Other)
  Sender: FDA-Public Use
  Company Number: None

PATIENT
  Age: 62 Year
  Sex: Male

DRUGS (1)
  1. PEGASYS [Suspect]
     Dosage: 180MCG QWEEK SQ
     Route: 058
     Dates: start: 20111018, end: 20111116

REACTIONS (5)
  - HEADACHE [None]
  - INSOMNIA [None]
  - HYPOGLYCAEMIA [None]
  - CONFUSIONAL STATE [None]
  - MEMORY IMPAIRMENT [None]
